FAERS Safety Report 22179476 (Version 2)
Quarter: 2023Q2

REPORT INFORMATION
  Report Type: Spontaneous
  Country: US (occurrence: US)
  Receive Date: 20230406
  Receipt Date: 20230509
  Transmission Date: 20230722
  Serious: No
  Sender: FDA-Public Use
  Company Number: US-SA-SAC20230405000095

PATIENT
  Age: 34 Year
  Sex: Male

DRUGS (3)
  1. DUPIXENT [Suspect]
     Active Substance: DUPILUMAB
     Indication: Dermatitis atopic
     Dosage: 600 MG, 1X
     Route: 058
     Dates: start: 20230324, end: 20230324
  2. PREDNISONE [Concomitant]
     Active Substance: PREDNISONE
     Dosage: UNK
  3. PREDNISONE [Concomitant]
     Active Substance: PREDNISONE

REACTIONS (6)
  - Sleep disorder [Unknown]
  - Discomfort [Unknown]
  - Eye irritation [Unknown]
  - Dermatitis atopic [Unknown]
  - Rash [Unknown]
  - Injection site reaction [Unknown]
